FAERS Safety Report 25799725 (Version 1)
Quarter: 2025Q3

REPORT INFORMATION
  Report Type: Spontaneous
  Country: US (occurrence: US)
  Receive Date: 20250914
  Receipt Date: 20250914
  Transmission Date: 20251021
  Serious: No
  Sender: MERCK SHARP & DOHME LLC
  Company Number: US-009507513-2323492

PATIENT
  Sex: Female
  Weight: 99.8 kg

DRUGS (14)
  1. SOTATERCEPT [Suspect]
     Active Substance: SOTATERCEPT
     Route: 065
     Dates: start: 20250716
  2. SOTATERCEPT [Suspect]
     Active Substance: SOTATERCEPT
  3. SOTATERCEPT [Suspect]
     Active Substance: SOTATERCEPT
  4. SOTATERCEPT [Suspect]
     Active Substance: SOTATERCEPT
  5. TYVASO DPI [Suspect]
     Active Substance: TREPROSTINIL
     Indication: Pulmonary arterial hypertension
     Route: 055
     Dates: start: 20250716, end: 2025
  6. TYVASO DPI [Suspect]
     Active Substance: TREPROSTINIL
     Indication: Pulmonary arterial hypertension
     Dosage: STRENGTH: 16  G
     Route: 055
     Dates: start: 2025, end: 20250813
  7. JARDIANCE [Concomitant]
     Active Substance: EMPAGLIFLOZIN
  8. MACITENTAN\TADALAFIL [Concomitant]
     Active Substance: MACITENTAN\TADALAFIL
  9. MAGNESIUM OXIDE [Concomitant]
     Active Substance: MAGNESIUM OXIDE
  10. LEVOTHYROXINE SODIUM [Concomitant]
     Active Substance: LEVOTHYROXINE SODIUM
  11. XANAX [Concomitant]
     Active Substance: ALPRAZOLAM
  12. SPIRONOLACTONE [Concomitant]
     Active Substance: SPIRONOLACTONE
  13. TORSEMIDE [Concomitant]
     Active Substance: TORSEMIDE
  14. levonorgestrel-ethinyl estradiol [Concomitant]

REACTIONS (2)
  - Oropharyngeal pain [Unknown]
  - Pyrexia [Unknown]

NARRATIVE: CASE EVENT DATE: 20250101
